FAERS Safety Report 19427259 (Version 1)
Quarter: 2021Q2

REPORT INFORMATION
  Report Type: Spontaneous
  Country: FR (occurrence: FR)
  Receive Date: 20210616
  Receipt Date: 20210616
  Transmission Date: 20210717
  Serious: Yes (Life-Threatening, Hospitalization)
  Sender: FDA-Public Use
  Company Number: FR-ROCHE-2849287

PATIENT
  Age: 23 Year
  Sex: Female
  Weight: 74 kg

DRUGS (7)
  1. LITHIUM. [Suspect]
     Active Substance: LITHIUM
     Indication: PRODUCT USED FOR UNKNOWN INDICATION
     Route: 065
  2. ZOPICLONE [Suspect]
     Active Substance: ZOPICLONE
     Indication: PRODUCT USED FOR UNKNOWN INDICATION
     Route: 048
  3. DIAZEPAM. [Suspect]
     Active Substance: DIAZEPAM
     Indication: BEHAVIOUR DISORDER
     Route: 048
     Dates: start: 20210218, end: 20210218
  4. LOXAPINE. [Suspect]
     Active Substance: LOXAPINE
     Indication: BEHAVIOUR DISORDER
     Dosage: 50MG LE 18/02/2021 ET 300MG LE 19/02/2021
     Route: 048
     Dates: start: 20210218, end: 20210219
  5. QUETIAPINE. [Concomitant]
     Active Substance: QUETIAPINE
  6. AKINETON [Concomitant]
     Active Substance: BIPERIDEN HYDROCHLORIDE
  7. CHLORPROMAZINE. [Concomitant]
     Active Substance: CHLORPROMAZINE

REACTIONS (2)
  - Multiple organ dysfunction syndrome [Recovering/Resolving]
  - Neuroleptic malignant syndrome [Recovering/Resolving]

NARRATIVE: CASE EVENT DATE: 20210221
